FAERS Safety Report 10226926 (Version 2)
Quarter: 2014Q2

REPORT INFORMATION
  Report Type: Spontaneous
  Country: US (occurrence: US)
  Receive Date: 20140610
  Receipt Date: 20140625
  Transmission Date: 20141212
  Serious: Yes (Hospitalization)
  Sender: FDA-Public Use
  Company Number: US-BEH-2014042970

PATIENT
  Age: 36 Year
  Sex: Female

DRUGS (2)
  1. BERINERT [Suspect]
     Indication: HEREDITARY ANGIOEDEMA
     Route: 042
     Dates: start: 20120411
  2. CINRYZE [Concomitant]

REACTIONS (2)
  - Hereditary angioedema [Unknown]
  - Hereditary angioedema [Unknown]
